FAERS Safety Report 4344378-6 (Version None)
Quarter: 2004Q2

REPORT INFORMATION
  Report Type: 
  Country: None (occurrence: None)
  Receive Date: 20040420
  Receipt Date: 20040405
  Transmission Date: 20050107
  Serious: Yes (Other)
  Sender: FDA-Public Use
  Company Number: 2004207987GB

PATIENT
  Sex: Female

DRUGS (1)
  1. ELLESTE SOLO (ESTRADIOL) PATCH [Suspect]

REACTIONS (1)
  - HAEMANGIOMA OF LIVER [None]
